FAERS Safety Report 6930302-6 (Version None)
Quarter: 2010Q3

REPORT INFORMATION
  Report Type: 
  Country: None (occurrence: None)
  Receive Date: 20100818
  Receipt Date: 20100812
  Transmission Date: 20110219
  Serious: Yes (Other)
  Sender: FDA-Public Use
  Company Number: BR-ROCHE-706224

PATIENT
  Sex: Female
  Weight: 52 kg

DRUGS (2)
  1. RIVOTRIL [Suspect]
     Indication: INSOMNIA
     Dosage: DOSE; 2.5 MG/ML; FREQUENCY; 30 DROPS/ DAY AT NIGHT
     Route: 048
     Dates: start: 20000101
  2. PHENOBARBITAL [Concomitant]
     Indication: SCAR
     Dosage: INDICATION ALSO CALLED AS CEREBRAL CYSTICERCOSIS.
     Route: 048
     Dates: start: 19700101

REACTIONS (7)
  - DRUG INEFFECTIVE [None]
  - DYSGEUSIA [None]
  - FALL [None]
  - HEAD INJURY [None]
  - MUSCULAR WEAKNESS [None]
  - NEOPLASM [None]
  - SYNCOPE [None]
